FAERS Safety Report 10940756 (Version 2)
Quarter: 2015Q2

REPORT INFORMATION
  Report Type: Spontaneous
  Country: US (occurrence: US)
  Receive Date: 20150322
  Receipt Date: 20150524
  Transmission Date: 20150821
  Serious: Yes (Other)
  Sender: FDA-Public Use
  Company Number: US-JNJFOC-20150120270

PATIENT
  Age: 57 Year
  Sex: Female
  Weight: 75.3 kg

DRUGS (1)
  1. INVOKANA [Suspect]
     Active Substance: CANAGLIFLOZIN
     Indication: TYPE 2 DIABETES MELLITUS
     Route: 048

REACTIONS (5)
  - Pollakiuria [Recovered/Resolved]
  - Thirst [Recovered/Resolved]
  - Vulvovaginal pruritus [Recovered/Resolved]
  - Dehydration [Recovered/Resolved]
  - Therapy cessation [Recovered/Resolved]
